FAERS Safety Report 10131973 (Version 1)
Quarter: 2014Q2

REPORT INFORMATION
  Report Type: Spontaneous
  Country: IT (occurrence: FR)
  Receive Date: 20140428
  Receipt Date: 20140428
  Transmission Date: 20141212
  Serious: Yes (Hospitalization)
  Sender: FDA-Public Use
  Company Number: FR-B.I. PHARMACEUTICALS,INC./RIDGEFIELD-2014-BI-17875FF

PATIENT
  Age: 60 Year
  Sex: Female

DRUGS (6)
  1. ATROVENT [Suspect]
     Indication: DYSPNOEA
     Dosage: STRENGTH: 0.25MG/2ML
     Route: 045
     Dates: start: 20131205, end: 20131209
  2. ULTRAVIST [Suspect]
     Indication: PRODUCT USED FOR UNKNOWN INDICATION
     Route: 042
     Dates: start: 20131205, end: 20131205
  3. BRICANYL [Suspect]
     Indication: PRODUCT USED FOR UNKNOWN INDICATION
     Dosage: STRENGTH: 5MG/2ML
     Route: 048
     Dates: start: 20131205, end: 20131205
  4. PULMICORT [Suspect]
     Indication: DYSPNOEA
     Dosage: STRENGTH AND DAILY DOSE: 1MG/2ML
     Route: 045
     Dates: start: 20131205, end: 20131205
  5. SOLUPRED [Suspect]
     Indication: PRODUCT USED FOR UNKNOWN INDICATION
     Dosage: 30 MG
     Route: 048
     Dates: start: 20131205, end: 20131209
  6. TANAKAN 40MG [Concomitant]
     Indication: HAEMORRHAGIC STROKE
     Dosage: 80 MG
     Route: 065
     Dates: start: 201311, end: 20131209

REACTIONS (3)
  - Erythema [Not Recovered/Not Resolved]
  - Pruritus [Not Recovered/Not Resolved]
  - Purpura [Not Recovered/Not Resolved]
